FAERS Safety Report 5686981-7 (Version None)
Quarter: 2008Q1

REPORT INFORMATION
  Report Type: 
  Country: None (occurrence: None)
  Receive Date: 20080328
  Receipt Date: 20070718
  Transmission Date: 20080703
  Serious: Yes (Other)
  Sender: FDA-Public Use
  Company Number: US-BAYER-US-2007-019772

PATIENT
  Age: 28 Year
  Sex: Female
  Weight: 77 kg

DRUGS (2)
  1. MIRENA [Suspect]
     Indication: CONTRACEPTION
     Route: 015
     Dates: start: 20060526
  2. XANAX [Concomitant]

REACTIONS (6)
  - ABORTION MISSED [None]
  - INTRA-UTERINE CONTRACEPTIVE DEVICE EXPELLED [None]
  - MELANOCYTIC NAEVUS [None]
  - OVARIAN CYST [None]
  - PREGNANCY WITH CONTRACEPTIVE DEVICE [None]
  - PROCEDURAL PAIN [None]
